FAERS Safety Report 9321740 (Version 2)
Quarter: 2013Q2

REPORT INFORMATION
  Report Type: Spontaneous
  Country: US (occurrence: None)
  Receive Date: 20130528
  Receipt Date: 20130611
  Transmission Date: 20140414
  Serious: Yes (Other)
  Sender: FDA-Public Use
  Company Number: US-ZYDUS-001177

PATIENT
  Age: 62 Year
  Sex: Male

DRUGS (1)
  1. AMLODIPINE (AMLODIPINE) [Suspect]

REACTIONS (2)
  - Cutaneous lupus erythematosus [None]
  - Lupus-like syndrome [None]
